FAERS Safety Report 10015699 (Version 1)
Quarter: 2014Q1

REPORT INFORMATION
  Report Type: Spontaneous
  Country: US (occurrence: US)
  Receive Date: 20140317
  Receipt Date: 20140317
  Transmission Date: 20141002
  Serious: No
  Sender: FDA-Public Use
  Company Number: US-PFIZER INC-2014076632

PATIENT
  Age: 73 Year
  Sex: Female
  Weight: 89.3 kg

DRUGS (5)
  1. EFFEXOR XR [Suspect]
     Indication: DEPRESSION
     Dosage: 75 MG, DAILY
     Dates: start: 201307
  2. EFFEXOR XR [Suspect]
     Indication: ANXIETY
     Dosage: 150 MG, DAILY
  3. LANTUS [Suspect]
     Indication: DIABETES MELLITUS
     Dosage: 20 IU, DAILY AT NIGHT
  4. LANTUS [Suspect]
     Dosage: 10 IU, 2X/DAY (IN MORNING AND AT NIGHT)
  5. NOVOLOG [Concomitant]
     Indication: DIABETES MELLITUS
     Dosage: UNK, AS NEEDED

REACTIONS (1)
  - Blood glucose increased [Unknown]
